FAERS Safety Report 4534969-1 (Version None)
Quarter: 2004Q4

REPORT INFORMATION
  Report Type: 
  Country: None (occurrence: None)
  Receive Date: 20041222
  Receipt Date: 20041005
  Transmission Date: 20050328
  Serious: No
  Sender: FDA-Public Use
  Company Number: US-BRISTOL-MYERS SQUIBB COMPANY-12722294

PATIENT
  Age: 64 Year
  Sex: Female
  Weight: 55 kg

DRUGS (4)
  1. PRAVACHOL [Suspect]
     Indication: BLOOD CHOLESTEROL INCREASED
     Dosage: INITIAL DOSE 40 MG DAILY, THEN 20 MG DAILY, THEN 20 MG EVERY OTHER DAY
     Route: 048
     Dates: start: 20031201
  2. CLARITIN [Concomitant]
  3. ZYRTEC [Concomitant]
  4. NASALCROM [Concomitant]
     Route: 045

REACTIONS (3)
  - ARTHRALGIA [None]
  - EPISTAXIS [None]
  - SINUS PAIN [None]
